FAERS Safety Report 7108736-9 (Version None)
Quarter: 2010Q4

REPORT INFORMATION
  Report Type: 
  Country: None (occurrence: None)
  Receive Date: 20101115
  Receipt Date: 20101115
  Transmission Date: 20110411
  Serious: No
  Sender: FDA-Public Use
  Company Number: None

PATIENT
  Sex: Female
  Weight: 56.6996 kg

DRUGS (1)
  1. DOCUSATE 100MG [Suspect]
     Indication: CHOLECYSTECTOMY
     Dosage: 1 TWICE A DAY
     Dates: start: 20101109, end: 20101112

REACTIONS (2)
  - RASH [None]
  - URTICARIA [None]
